FAERS Safety Report 9891496 (Version 1)
Quarter: 2014Q1

REPORT INFORMATION
  Report Type: Spontaneous
  Country: US (occurrence: None)
  Receive Date: 20140210
  Receipt Date: 20140210
  Transmission Date: 20141002
  Serious: Yes (Death)
  Sender: FDA-Public Use
  Company Number: 2014SA014257

PATIENT
  Sex: 0

DRUGS (2)
  1. ACETYLSALICYLIC ACID/CAFFEINE/PARACETAMOL [Suspect]
     Route: 048
  2. HYDROCODONE/PARACETAMOL [Suspect]
     Route: 048

REACTIONS (1)
  - Intentional overdose [None]
